FAERS Safety Report 11980214 (Version 1)
Quarter: 2016Q1

REPORT INFORMATION
  Report Type: Report from Study
  Country: US (occurrence: US)
  Receive Date: 20160129
  Receipt Date: 20160129
  Transmission Date: 20160526
  Serious: Yes (Hospitalization)
  Sender: FDA-Public Use
  Company Number: US-ABBVIE-16K-163-1546276-00

PATIENT
  Age: 68 Year
  Sex: Male

DRUGS (2)
  1. VITAMIN B12 [Concomitant]
     Active Substance: CYANOCOBALAMIN
     Indication: PRODUCT USED FOR UNKNOWN INDICATION
  2. HUMIRA [Suspect]
     Active Substance: ADALIMUMAB
     Indication: COLITIS ULCERATIVE
     Route: 058
     Dates: start: 2011, end: 201512

REACTIONS (7)
  - Gastrointestinal anastomotic leak [Recovering/Resolving]
  - Myocardial infarction [Recovering/Resolving]
  - Tremor [Recovered/Resolved with Sequelae]
  - Large intestinal obstruction [Recovering/Resolving]
  - Stress [Unknown]
  - Abdominal infection [Not Recovered/Not Resolved]
  - Procedural complication [Recovering/Resolving]

NARRATIVE: CASE EVENT DATE: 201512
